FAERS Safety Report 25719111 (Version 2)
Quarter: 2025Q3

REPORT INFORMATION
  Report Type: Report from Study
  Country: US (occurrence: US)
  Receive Date: 20250823
  Receipt Date: 20250921
  Transmission Date: 20251021
  Serious: Yes (Other)
  Sender: ABBVIE
  Company Number: US-ABBVIE-6424020

PATIENT
  Age: 69 Year
  Sex: Female

DRUGS (1)
  1. SKYRIZI [Suspect]
     Active Substance: RISANKIZUMAB-RZAA
     Indication: Psoriasis
     Route: 058
     Dates: start: 20250116

REACTIONS (14)
  - Lung neoplasm malignant [Not Recovered/Not Resolved]
  - Rash papular [Not Recovered/Not Resolved]
  - Lymphoedema [Unknown]
  - Benign breast neoplasm [Unknown]
  - Skin discolouration [Not Recovered/Not Resolved]
  - Dry skin [Recovered/Resolved]
  - Pruritus [Not Recovered/Not Resolved]
  - Fatigue [Recovering/Resolving]
  - Genital swelling [Not Recovered/Not Resolved]
  - Fungal infection [Unknown]
  - Erythema [Not Recovered/Not Resolved]
  - Fluid retention [Unknown]
  - Pain in extremity [Recovering/Resolving]
  - Musculoskeletal disorder [Not Recovered/Not Resolved]

NARRATIVE: CASE EVENT DATE: 20250101
